FAERS Safety Report 6879055-0 (Version None)
Quarter: 2010Q3

REPORT INFORMATION
  Report Type: 
  Country: None (occurrence: None)
  Receive Date: 20100728
  Receipt Date: 20100714
  Transmission Date: 20110219
  Serious: Yes (Other)
  Sender: FDA-Public Use
  Company Number: PHHY2009CA18481

PATIENT
  Sex: Female

DRUGS (2)
  1. ZOLEDRONIC ACID (RECLAST) [Suspect]
     Indication: OSTEOPOROSIS
     Dosage: UNK
     Dates: start: 20080411
  2. ZOLEDRONIC ACID (RECLAST) [Suspect]
     Dosage: UNK
     Dates: start: 20090520

REACTIONS (4)
  - CHILLS [None]
  - MALAISE [None]
  - MYOCARDIAL INFARCTION [None]
  - PYREXIA [None]
